FAERS Safety Report 12951337 (Version 1)
Quarter: 2016Q4

REPORT INFORMATION
  Report Type: Spontaneous
  Country: US (occurrence: US)
  Receive Date: 20161117
  Receipt Date: 20161117
  Transmission Date: 20170207
  Serious: Yes (Other)
  Sender: FDA-Public Use
  Company Number: US-PFIZER INC-2016529165

PATIENT
  Sex: Male

DRUGS (1)
  1. SULFASALAZINE. [Suspect]
     Active Substance: SULFASALAZINE
     Indication: LARGE INTESTINAL ULCER
     Dosage: UNK

REACTIONS (2)
  - Muscle disorder [Unknown]
  - Product use issue [Unknown]
